FAERS Safety Report 16850385 (Version 1)
Quarter: 2019Q3

REPORT INFORMATION
  Report Type: Spontaneous
  Country: US (occurrence: US)
  Receive Date: 20190925
  Receipt Date: 20190925
  Transmission Date: 20191005
  Serious: No
  Sender: FDA-Public Use
  Company Number: US-BAYER-2019-174530

PATIENT
  Age: 60 Year
  Sex: Female
  Weight: 109 kg

DRUGS (1)
  1. MIRALAX [Suspect]
     Active Substance: POLYETHYLENE GLYCOL 3350
     Indication: CONSTIPATION
     Dosage: 1 DF, QD
     Route: 048

REACTIONS (5)
  - Nausea [Unknown]
  - Product use in unapproved indication [Unknown]
  - Malaise [Unknown]
  - Product use issue [Unknown]
  - Product contamination physical [None]
